FAERS Safety Report 15464350 (Version 7)
Quarter: 2020Q3

REPORT INFORMATION
  Report Type: Spontaneous
  Country: DE (occurrence: DE)
  Receive Date: 20181004
  Receipt Date: 20200702
  Transmission Date: 20201102
  Serious: Yes (Death, Other)
  Sender: FDA-Public Use
  Company Number: DE-BRISTOL-MYERS SQUIBB COMPANY-BMS-2018-092854

PATIENT
  Age: 17 Year
  Sex: Female
  Weight: 50 kg

DRUGS (10)
  1. OPDIVO [Suspect]
     Active Substance: NIVOLUMAB
     Dosage: 50 MG, UNK
     Route: 042
     Dates: start: 20180831
  2. POSACONAZOLE [Concomitant]
     Active Substance: POSACONAZOLE
     Indication: PRODUCT USED FOR UNKNOWN INDICATION
     Dosage: 300 MG, BID
     Route: 065
  3. OPDIVO [Suspect]
     Active Substance: NIVOLUMAB
     Indication: PRIMARY MEDIASTINAL LARGE B-CELL LYMPHOMA
     Dosage: 15 MG, UNK
     Route: 042
     Dates: start: 20180727
  4. AMBISOME [Concomitant]
     Active Substance: AMPHOTERICIN B
     Dosage: 50 MG, UNK
     Dates: start: 20180911, end: 20180918
  5. AMBISOME [Concomitant]
     Active Substance: AMPHOTERICIN B
     Indication: PRODUCT USED FOR UNKNOWN INDICATION
     Dosage: 60 MG, ON MONDAY AND THURSDAY
     Route: 042
     Dates: end: 20180907
  6. BUDESONIDE. [Concomitant]
     Active Substance: BUDESONIDE
     Indication: PRODUCT USED FOR UNKNOWN INDICATION
     Dosage: 3 MG, BID
     Route: 065
  7. OPDIVO [Suspect]
     Active Substance: NIVOLUMAB
     Dosage: 50 MG, UNK
     Route: 042
     Dates: start: 20180913
  8. POSACONAZOLE [Concomitant]
     Active Substance: POSACONAZOLE
     Dosage: 300 MG, QD
     Route: 065
  9. OPDIVO [Suspect]
     Active Substance: NIVOLUMAB
     Dosage: 30 MG, UNK
     Route: 042
     Dates: start: 20180824
  10. VALGANCICLOVIR. [Concomitant]
     Active Substance: VALGANCICLOVIR
     Indication: PRODUCT USED FOR UNKNOWN INDICATION
     Dosage: 450 MG, BID
     Route: 065

REACTIONS (5)
  - Pulmonary haemorrhage [Fatal]
  - Haemoglobin decreased [Unknown]
  - Off label use [Unknown]
  - Intentional product use issue [Unknown]
  - Prescribed underdose [Unknown]

NARRATIVE: CASE EVENT DATE: 20181001
